FAERS Safety Report 4745566-7 (Version None)
Quarter: 2005Q3

REPORT INFORMATION
  Report Type: 
  Country: None (occurrence: None)
  Receive Date: 20050812
  Receipt Date: 20050804
  Transmission Date: 20060218
  Serious: Yes (Hospitalization, Other)
  Sender: FDA-Public Use
  Company Number: 2005100567

PATIENT
  Sex: Female
  Weight: 63.5036 kg

DRUGS (3)
  1. XALATAN [Suspect]
     Indication: GLAUCOMA
     Dosage: 1 DROP (1 DROP, QHS INTERVAL:  EVERY NIGHT), OPHTHALMIC
     Route: 047
     Dates: start: 19970101
  2. TIMOPTIC [Concomitant]
  3. ^BRIMODINE^ (BRIMONIDINE) [Concomitant]

REACTIONS (8)
  - DIZZINESS [None]
  - DYSPNOEA [None]
  - HEART RATE INCREASED [None]
  - MYOCARDIAL INFARCTION [None]
  - MYOCARDITIS [None]
  - PERICARDITIS [None]
  - SYNCOPE [None]
  - VIRAL INFECTION [None]
